FAERS Safety Report 6859330-6 (Version None)
Quarter: 2010Q3

REPORT INFORMATION
  Report Type: 
  Country: None (occurrence: None)
  Receive Date: 20100719
  Receipt Date: 20080307
  Transmission Date: 20110219
  Serious: No
  Sender: FDA-Public Use
  Company Number: US-PFIZER INC-2008019085

PATIENT
  Sex: Female
  Weight: 72.6 kg

DRUGS (2)
  1. CHANTIX [Suspect]
     Indication: SMOKING CESSATION THERAPY
     Dates: start: 20080214
  2. LISINOPRIL [Concomitant]
     Indication: HYPERTENSION

REACTIONS (7)
  - ABDOMINAL DISCOMFORT [None]
  - ABNORMAL FAECES [None]
  - DYSGEUSIA [None]
  - HEADACHE [None]
  - INCREASED APPETITE [None]
  - URINE ODOUR ABNORMAL [None]
  - WEIGHT INCREASED [None]
